FAERS Safety Report 5255577-3 (Version None)
Quarter: 2007Q1

REPORT INFORMATION
  Report Type: 
  Country: None (occurrence: None)
  Receive Date: 20070228
  Receipt Date: 20070219
  Transmission Date: 20070707
  Serious: Yes (Other)
  Sender: FDA-Public Use
  Company Number: GXKR2007FR01788

PATIENT
  Age: 40 Year
  Sex: Female
  Weight: 40 kg

DRUGS (2)
  1. RIBAVIRIN [Suspect]
     Indication: HEPATITIS C VIRUS
     Dosage: 600 MG QD, UNK
     Dates: start: 20050901
  2. PEGINTERFERON ALFA-2A (PEGINTERFERON ALFA-2A) [Suspect]
     Indication: HEPATITIS C VIRUS
     Dosage: 135 UG, QW, UNK
     Dates: start: 20050901

REACTIONS (2)
  - CONDITION AGGRAVATED [None]
  - HEPATITIS B [None]
